FAERS Safety Report 8803780 (Version 1)
Quarter: 2012Q4

REPORT INFORMATION
  Report Type: 
  Country: IT (occurrence: IT)
  Receive Date: 20120923
  Receipt Date: 20120923
  Transmission Date: 20130627
  Serious: Yes (Hospitalization)
  Sender: FDA-Public Use
  Company Number: IT-BRISTOL-MYERS SQUIBB COMPANY-16954901

PATIENT
  Age: 90 Year
  Sex: Female

DRUGS (6)
  1. COUMADIN [Suspect]
     Dosage: Last dose on 29Aug12
     Route: 048
     Dates: start: 20110331
  2. CITALOPRAM [Concomitant]
     Dosage: Citalopram HCL
     Route: 048
  3. TRITTICO [Concomitant]
     Dosage: tabs
     Route: 048
  4. LANSOX [Concomitant]
     Dosage: tabs
     Route: 048
  5. TRIATEC [Concomitant]
     Dosage: tabs
     Route: 048
  6. TALOFEN [Concomitant]
     Dosage: Talofen 4 gr/100 ml
     Route: 048

REACTIONS (2)
  - Intussusception [Recovering/Resolving]
  - International normalised ratio increased [Recovering/Resolving]
